FAERS Safety Report 19786930 (Version 1)
Quarter: 2021Q3

REPORT INFORMATION
  Report Type: Spontaneous
  Country: GR (occurrence: GR)
  Receive Date: 20210903
  Receipt Date: 20210903
  Transmission Date: 20211014
  Serious: Yes (Other)
  Sender: FDA-Public Use
  Company Number: GR-APOTEX-2021AP042331

PATIENT
  Age: 80 Year
  Sex: Male

DRUGS (1)
  1. SEROXAT [Suspect]
     Active Substance: PAROXETINE HYDROCHLORIDE
     Indication: PRODUCT USED FOR UNKNOWN INDICATION
     Dosage: 20 MILLIGRAM, BID
     Route: 065
     Dates: start: 1996

REACTIONS (3)
  - Musculoskeletal stiffness [Unknown]
  - Akinesia [Unknown]
  - Parkinsonism [Unknown]

NARRATIVE: CASE EVENT DATE: 2021
